FAERS Safety Report 19603746 (Version 1)
Quarter: 2021Q3

REPORT INFORMATION
  Report Type: Spontaneous
  Country: CN (occurrence: CN)
  Receive Date: 20210723
  Receipt Date: 20210723
  Transmission Date: 20211014
  Serious: Yes (Other)
  Sender: FDA-Public Use
  Company Number: CN-ASTRAZENECA-2021A601877

PATIENT
  Sex: Male
  Weight: 75 kg

DRUGS (6)
  1. METFORMIN [Concomitant]
     Active Substance: METFORMIN HYDROCHLORIDE
     Route: 048
  2. FORXIGA [Suspect]
     Active Substance: DAPAGLIFLOZIN
     Indication: BLOOD GLUCOSE INCREASED
     Route: 048
  3. ACARBOSE. [Concomitant]
     Active Substance: ACARBOSE
     Indication: BLOOD GLUCOSE INCREASED
  4. ATORVASTATIN CALCIUM. [Suspect]
     Active Substance: ATORVASTATIN CALCIUM
     Indication: PERIPHERAL ARTERIAL OCCLUSIVE DISEASE
     Dosage: EVERY THREE OR FIVE DAYS TOTALLY TOOK FOR 10?20 TABLETS(NO SPECIFIC TIME WAS INFORMED)
     Route: 065
  5. ACARBOSE. [Concomitant]
     Active Substance: ACARBOSE
     Indication: BLOOD GLUCOSE INCREASED
  6. ATORVASTATIN CALCIUM. [Suspect]
     Active Substance: ATORVASTATIN CALCIUM
     Indication: PERIPHERAL ARTERIAL OCCLUSIVE DISEASE
     Dosage: DAILY
     Route: 065

REACTIONS (8)
  - Asthenia [Recovered/Resolved]
  - Eating disorder [Unknown]
  - Ill-defined disorder [Recovered/Resolved]
  - Fatigue [Recovered/Resolved]
  - Pollakiuria [Unknown]
  - Nausea [Not Recovered/Not Resolved]
  - Pain in extremity [Recovered/Resolved]
  - Diabetic ketoacidosis [Unknown]
